FAERS Safety Report 7575286 (Version 4)
Quarter: 2015Q4

REPORT INFORMATION
  Report Type: Other
  Country: GB (occurrence: GB)
  Receive Date: 20100907
  Receipt Date: 20151019
  Transmission Date: 20160305
  Serious: Yes (Death)
  Sender: FDA-Public Use
  Company Number: GB-MYLANLABS-2010S1015525

PATIENT

DRUGS (9)
  1. OXAZEPAM. [Suspect]
     Active Substance: OXAZEPAM
     Dosage: OVERDOSE: SMALL AMOUNT
     Route: 048
     Dates: start: 20081209, end: 20081209
  2. CIPRALEX [Suspect]
     Active Substance: ESCITALOPRAM OXALATE
     Indication: DEPRESSION
     Dosage: 10 MG,QD
     Route: 048
     Dates: start: 200803, end: 200807
  3. CIPRALEX [Suspect]
     Active Substance: ESCITALOPRAM OXALATE
     Dosage: OVERDOSE: 22 X 10MG TABLETS
     Route: 048
     Dates: start: 20081203, end: 20081209
  4. ALCOHOL. [Suspect]
     Active Substance: ALCOHOL
     Dosage: 5X DRIVING LIMIT
     Route: 048
     Dates: start: 20081209, end: 20081209
  5. NORTRIPTYLINE [Suspect]
     Active Substance: NORTRIPTYLINE
     Dosage: 5X DRIVING LIMIT
     Route: 048
     Dates: start: 20081209, end: 20081209
  6. TEMAZEPAM. [Suspect]
     Active Substance: TEMAZEPAM
     Dosage: OVERDOSE: SMALL AMOUNT
     Route: 048
     Dates: start: 20081209, end: 20081209
  7. CIPRALEX [Suspect]
     Active Substance: ESCITALOPRAM OXALATE
     Indication: ANXIETY
     Dosage: 220 MG,ONCE
     Route: 048
     Dates: start: 20081209, end: 20081209
  8. FLUOXETINE [Suspect]
     Active Substance: FLUOXETINE HYDROCHLORIDE
     Dosage: OVERDOSE: SMALL AMOUNT
     Route: 048
     Dates: start: 20081209, end: 20081209
  9. IBUPROFEN. [Suspect]
     Active Substance: IBUPROFEN
     Dosage: OVERDOSE: SMALL AMOUNT
     Route: 048
     Dates: start: 20081209, end: 20081209

REACTIONS (2)
  - Completed suicide [Fatal]
  - Intentional overdose [Fatal]

NARRATIVE: CASE EVENT DATE: 20081209
